FAERS Safety Report 25211542 (Version 1)
Quarter: 2025Q2

REPORT INFORMATION
  Report Type: Spontaneous
  Country: US (occurrence: US)
  Receive Date: 20250418
  Receipt Date: 20250418
  Transmission Date: 20250716
  Serious: No
  Sender: ROCHE
  Company Number: US-ROCHE-10000258852

PATIENT
  Sex: Female

DRUGS (3)
  1. XOLAIR PFS [Suspect]
     Active Substance: OMALIZUMAB
     Indication: Urticaria
     Route: 058
     Dates: start: 202103
  2. XOLAIR PFS [Suspect]
     Active Substance: OMALIZUMAB
  3. COSENTYX SYR(2/PK) [Concomitant]

REACTIONS (2)
  - Drug ineffective [Unknown]
  - No adverse event [Unknown]
